FAERS Safety Report 4451106-2 (Version None)
Quarter: 2004Q3

REPORT INFORMATION
  Report Type: 
  Country: None (occurrence: None)
  Receive Date: 20040916
  Receipt Date: 20040906
  Transmission Date: 20050211
  Serious: Yes (Other)
  Sender: FDA-Public Use
  Company Number: JP-JNJFOC-20040901513

PATIENT
  Age: 31 Year
  Sex: Female

DRUGS (1)
  1. TAVINIC [Suspect]
     Indication: URINARY TRACT INFECTION
     Route: 049
     Dates: start: 20040824, end: 20040824

REACTIONS (4)
  - CHILLS [None]
  - HYPERVENTILATION [None]
  - HYPOAESTHESIA [None]
  - PARAESTHESIA [None]
